FAERS Safety Report 6004029-1 (Version None)
Quarter: 2008Q4

REPORT INFORMATION
  Report Type: 
  Country: None (occurrence: None)
  Receive Date: 20081216
  Receipt Date: 20081212
  Transmission Date: 20090506
  Serious: Yes (Other)
  Sender: FDA-Public Use
  Company Number: A0760194A

PATIENT
  Age: 59 Year
  Sex: Female

DRUGS (8)
  1. TREXIMET [Suspect]
     Indication: MIGRAINE
     Dosage: 1TAB AS REQUIRED
     Route: 048
     Dates: start: 20080801, end: 20081001
  2. SIMVASTATIN [Concomitant]
  3. EVISTA [Concomitant]
  4. NEXIUM [Concomitant]
  5. CALCIUM [Concomitant]
  6. ASCORBIC ACID [Concomitant]
  7. OSTEO BI-FLEX [Concomitant]
  8. ALLEGRA [Concomitant]

REACTIONS (2)
  - ANGINA PECTORIS [None]
  - ANXIETY [None]
